FAERS Safety Report 5805922-2 (Version None)
Quarter: 2008Q3

REPORT INFORMATION
  Report Type: 
  Country: None (occurrence: None)
  Receive Date: 20080710
  Receipt Date: 20080703
  Transmission Date: 20090109
  Serious: Yes (Other)
  Sender: FDA-Public Use
  Company Number: US-ASTRAZENECA-2007UW28987

PATIENT
  Age: 49 Year
  Sex: Male
  Weight: 117.7 kg

DRUGS (7)
  1. SEROQUEL [Suspect]
     Indication: HALLUCINATION, AUDITORY
     Dosage: VARIOUS INCLUDING BUT NOT LIMITED TO 600 MG + 800 MG
     Route: 048
     Dates: start: 19970101
  2. SEROQUEL [Suspect]
     Indication: SCHIZOPHRENIA
     Dosage: VARIOUS INCLUDING BUT NOT LIMITED TO 600 MG + 800 MG
     Route: 048
     Dates: start: 19970101
  3. SEROQUEL [Suspect]
     Indication: DEPRESSION
     Dosage: VARIOUS INCLUDING BUT NOT LIMITED TO 600 MG + 800 MG
     Route: 048
     Dates: start: 19970101
  4. ABILIFY [Concomitant]
     Dates: start: 20070101
  5. NAVANE [Concomitant]
     Dates: start: 19860101
  6. THORAZINE [Concomitant]
     Dates: start: 19840101
  7. LEXAPRO [Concomitant]
     Dates: start: 20070101

REACTIONS (6)
  - CHRONIC OBSTRUCTIVE PULMONARY DISEASE [None]
  - CORONARY ARTERY DISEASE [None]
  - DIABETES MELLITUS [None]
  - GASTROOESOPHAGEAL REFLUX DISEASE [None]
  - NEURALGIA [None]
  - NEUROPATHY PERIPHERAL [None]
